FAERS Safety Report 4423075-2 (Version None)
Quarter: 2004Q3

REPORT INFORMATION
  Report Type: 
  Country: None (occurrence: None)
  Receive Date: 20040810
  Receipt Date: 20040810
  Transmission Date: 20050211
  Serious: Yes (Life-Threatening)
  Sender: FDA-Public Use
  Company Number: None

PATIENT
  Age: 33 Year
  Sex: Male
  Weight: 68.0396 kg

DRUGS (2)
  1. PAXIL [Suspect]
     Indication: POVERTY
  2. PAXIL [Suspect]
     Indication: STRESS SYMPTOMS

REACTIONS (2)
  - RESTLESSNESS [None]
  - SUICIDE ATTEMPT [None]
